FAERS Safety Report 6983370-X (Version None)
Quarter: 2010Q3

REPORT INFORMATION
  Report Type: 
  Country: None (occurrence: None)
  Receive Date: 20100914
  Receipt Date: 20100914
  Transmission Date: 20110219
  Serious: Yes (Other)
  Sender: FDA-Public Use
  Company Number: None

PATIENT
  Age: 41 Year
  Sex: Female
  Weight: 87.9978 kg

DRUGS (2)
  1. SULFAMETHOXZOLE + TRIMETHOPRIM DS 800 QUALITEST [Suspect]
     Indication: ANORECTAL INFECTION
     Dosage: 1 TABLET Q12H PO
     Route: 048
     Dates: start: 20100907, end: 20100910
  2. SULFAMETHOXZOLE + TRIMETHOPRIM DS 800 QUALITEST [Suspect]
     Indication: SKIN INFECTION
     Dosage: 1 TABLET Q12H PO
     Route: 048
     Dates: start: 20100907, end: 20100910

REACTIONS (2)
  - RASH GENERALISED [None]
  - RASH PAPULAR [None]
